FAERS Safety Report 13885294 (Version 1)
Quarter: 2017Q3

REPORT INFORMATION
  Report Type: Spontaneous
  Country: JP (occurrence: JP)
  Receive Date: 20170821
  Receipt Date: 20170821
  Transmission Date: 20171127
  Serious: Yes (Other)
  Sender: FDA-Public Use
  Company Number: PHJP2017JP025969

PATIENT

DRUGS (1)
  1. RITALIN [Suspect]
     Active Substance: METHYLPHENIDATE HYDROCHLORIDE
     Indication: PRODUCT USED FOR UNKNOWN INDICATION
     Dosage: 3 DF, UNK
     Route: 045

REACTIONS (6)
  - Somnolence [Unknown]
  - Injury [Recovered/Resolved with Sequelae]
  - Incorrect route of drug administration [Unknown]
  - Mobility decreased [Unknown]
  - Road traffic accident [Unknown]
  - Haemorrhage [Unknown]
